FAERS Safety Report 9062048 (Version 1)
Quarter: 2013Q1

REPORT INFORMATION
  Report Type: Spontaneous
  Country: US (occurrence: US)
  Receive Date: 20130129
  Receipt Date: 20130129
  Transmission Date: 20140127
  Serious: No
  Sender: FDA-Public Use
  Company Number: US-COVIDIEN/TYCO HEALTHCARE/MALLINCKRODT-T201300102

PATIENT
  Age: 51 Year
  Sex: Female

DRUGS (4)
  1. DEXTROAMPHETAMINE SULFATE EXTENDED-RELEASE [Suspect]
     Indication: ATTENTION DEFICIT/HYPERACTIVITY DISORDER
     Dosage: 2 CAPS BID
     Route: 048
     Dates: start: 201301
  2. DEXTROAMPHETAMINE SULFATE [Concomitant]
     Indication: ATTENTION DEFICIT/HYPERACTIVITY DISORDER
     Dosage: UNK
     Dates: start: 2010, end: 201301
  3. HYDROCODONE BITARTRATE AND ACETAMINOPHEN [Concomitant]
     Dosage: 5/325 MG Q8HR PRN
  4. HALDOL                             /00027401/ [Concomitant]
     Dosage: 0.5 MG

REACTIONS (1)
  - Nausea [Unknown]
